FAERS Safety Report 23421313 (Version 1)
Quarter: 2024Q1

REPORT INFORMATION
  Report Type: Spontaneous
  Country: US (occurrence: US)
  Receive Date: 20240119
  Receipt Date: 20240119
  Transmission Date: 20240410
  Serious: Yes (Hospitalization)
  Sender: FDA-Public Use
  Company Number: US-MYLANLABS-2024M1005323

PATIENT
  Age: 42 Year
  Sex: Male

DRUGS (6)
  1. CABERGOLINE [Suspect]
     Active Substance: CABERGOLINE
     Indication: Secretory adenoma of pituitary
     Dosage: 0.5 MILLIGRAM, QW
     Route: 065
  2. CABERGOLINE [Suspect]
     Active Substance: CABERGOLINE
     Indication: Thyroid stimulating hormone-producing pituitary tumour
     Dosage: 0.5 MILLIGRAM, QW, RECEIVED ESCALATED CABERGOLINE TO 0.5MG 5 DAYS WEEKLY
     Route: 065
  3. PREDNISONE [Suspect]
     Active Substance: PREDNISONE
     Indication: Secretory adenoma of pituitary
     Dosage: 40 MILLIGRAM, QD
     Route: 065
  4. PREDNISONE [Suspect]
     Active Substance: PREDNISONE
     Indication: Thyroid stimulating hormone-producing pituitary tumour
  5. METHIMAZOLE [Suspect]
     Active Substance: METHIMAZOLE
     Indication: Secretory adenoma of pituitary
     Dosage: 30 MILLIGRAM, BID
     Route: 065
  6. METHIMAZOLE [Suspect]
     Active Substance: METHIMAZOLE
     Indication: Thyroid stimulating hormone-producing pituitary tumour

REACTIONS (1)
  - Drug ineffective [Unknown]
